FAERS Safety Report 7512496-7 (Version None)
Quarter: 2011Q2

REPORT INFORMATION
  Report Type: 
  Country: None (occurrence: None)
  Receive Date: 20110531
  Receipt Date: 20110524
  Transmission Date: 20111010
  Serious: Yes (Hospitalization)
  Sender: FDA-Public Use
  Company Number: US-ROCHE-779173

PATIENT
  Sex: Female

DRUGS (2)
  1. BONIVA [Suspect]
     Route: 042
  2. BONIVA [Suspect]
     Route: 065

REACTIONS (4)
  - HYPERTENSION [None]
  - TOOTH REPAIR [None]
  - SURGERY [None]
  - GASTROINTESTINAL PAIN [None]
